FAERS Safety Report 8504591-0 (Version None)
Quarter: 2012Q3

REPORT INFORMATION
  Report Type: 
  Country: None (occurrence: None)
  Receive Date: 20120711
  Receipt Date: 20120703
  Transmission Date: 20120928
  Serious: Yes (Hospitalization, Other)
  Sender: FDA-Public Use
  Company Number: FR-009507513-1204FRA00033

PATIENT

DRUGS (8)
  1. RASILEZ [Suspect]
     Route: 048
  2. NICARDIPINE HCL [Concomitant]
  3. TRIPHASIL-21 [Suspect]
     Route: 048
  4. EZETIMIBE [Suspect]
     Route: 048
  5. BROMAZEPAM [Concomitant]
  6. MEDIATENSYL [Concomitant]
  7. MK-9378 [Concomitant]
     Indication: TYPE 2 DIABETES MELLITUS
  8. JANUVIA [Suspect]
     Indication: TYPE 2 DIABETES MELLITUS
     Dosage: 100 MG, QD
     Route: 048
     Dates: start: 20081201, end: 20120318

REACTIONS (3)
  - HEPATIC NEOPLASM [None]
  - HYPERTRIGLYCERIDAEMIA [None]
  - PANCREATITIS ACUTE [None]
